FAERS Safety Report 8020344-4 (Version None)
Quarter: 2012Q1

REPORT INFORMATION
  Report Type: 
  Country: None (occurrence: None)
  Receive Date: 20120103
  Receipt Date: 20111222
  Transmission Date: 20120608
  Serious: Yes (Death)
  Sender: FDA-Public Use
  Company Number: IE-ROCHE-1003865

PATIENT
  Sex: Female

DRUGS (8)
  1. SPIRIVA [Concomitant]
  2. PREDNISOLONE [Concomitant]
  3. AUGMENTIN '125' [Concomitant]
  4. RANIBIZUMAB [Suspect]
     Indication: AGE-RELATED MACULAR DEGENERATION
     Route: 050
     Dates: start: 20090930
  5. ALENDRONIC ACID [Concomitant]
  6. ACETYLSALICYLIC ACID SRT [Concomitant]
  7. PANTOPRAZOLE [Concomitant]
  8. FLUTICASONE PROPIONATE/SALMETEROL [Concomitant]

REACTIONS (1)
  - PULMONARY FIBROSIS [None]
